FAERS Safety Report 10948807 (Version 2)
Quarter: 2015Q1

REPORT INFORMATION
  Report Type: Spontaneous
  Country: ES (occurrence: ES)
  Receive Date: 20150324
  Receipt Date: 20150330
  Transmission Date: 20150721
  Serious: Yes (Other)
  Sender: FDA-Public Use
  Company Number: ES-AMGEN-ESPSP2015025807

PATIENT
  Age: 77 Year
  Sex: Female

DRUGS (1)
  1. PROLIA [Suspect]
     Active Substance: DENOSUMAB
     Indication: OSTEOPOROSIS
     Dosage: UNK
     Route: 065

REACTIONS (9)
  - Macular degeneration [Unknown]
  - Weight decreased [Unknown]
  - Pain [Unknown]
  - Tooth disorder [Unknown]
  - Arrhythmia [Unknown]
  - Knee arthroplasty [Recovered/Resolved]
  - Procedural haemorrhage [Unknown]
  - Loose tooth [Unknown]
  - Tooth infection [Unknown]
